FAERS Safety Report 5181716-9 (Version None)
Quarter: 2006Q4

REPORT INFORMATION
  Report Type: 
  Country: None (occurrence: None)
  Receive Date: 20061220
  Receipt Date: 20060228
  Transmission Date: 20070319
  Serious: No
  Sender: FDA-Public Use
  Company Number: US-GLAXOSMITHKLINE-A0595509A

PATIENT
  Age: 71 Year
  Sex: Female

DRUGS (2)
  1. COMMIT [Suspect]
     Dosage: 2MG UNKNOWN
     Dates: start: 20050322, end: 20060226
  2. ADVAIR DISKUS 100/50 [Suspect]
     Indication: DRUG USE FOR UNKNOWN INDICATION
     Route: 055

REACTIONS (4)
  - DYSTONIA [None]
  - FLATULENCE [None]
  - INTENTIONAL DRUG MISUSE [None]
  - PHARYNGOLARYNGEAL PAIN [None]
